FAERS Safety Report 6635330-6 (Version None)
Quarter: 2010Q1

REPORT INFORMATION
  Report Type: 
  Country: None (occurrence: None)
  Receive Date: 20100315
  Receipt Date: 20100305
  Transmission Date: 20100710
  Serious: Yes (Hospitalization)
  Sender: FDA-Public Use
  Company Number: DE-ABBOTT-10P-062-0631085-00

PATIENT
  Age: 71 Year
  Sex: Female

DRUGS (3)
  1. ZEMPLAR [Suspect]
     Indication: SECONDARY HYPERTHYROIDISM
     Dates: start: 20090401, end: 20100215
  2. MARCUMAR [Concomitant]
     Indication: ATRIAL FIBRILLATION
  3. CINACALCET HYDROCHLORIDE [Concomitant]
     Indication: SECONDARY HYPERTHYROIDISM
     Dates: start: 20090801

REACTIONS (2)
  - CALCIPHYLAXIS [None]
  - SOFT TISSUE NECROSIS [None]
